FAERS Safety Report 18670838 (Version 2)
Quarter: 2022Q1

REPORT INFORMATION
  Report Type: Report from Study
  Country: US (occurrence: US)
  Receive Date: 20201228
  Receipt Date: 20220301
  Transmission Date: 20220423
  Serious: Yes (Hospitalization)
  Sender: FDA-Public Use
  Company Number: US-TAKEDA-US201912955

PATIENT
  Age: 43 Year
  Sex: Female
  Weight: 54 kg

DRUGS (2)
  1. VELAGLUCERASE ALFA [Suspect]
     Active Substance: VELAGLUCERASE ALFA
     Indication: Gaucher^s disease
     Dosage: 3200 INTERNATIONAL UNIT, 1X/2WKS
     Route: 042
     Dates: start: 201904
  2. VELAGLUCERASE ALFA [Suspect]
     Active Substance: VELAGLUCERASE ALFA
     Dosage: 3200 INTERNATIONAL UNIT, 1X/2WKS
     Route: 042

REACTIONS (3)
  - Illness [Unknown]
  - Malaise [Unknown]
  - Inappropriate schedule of product administration [Unknown]

NARRATIVE: CASE EVENT DATE: 20190402
